FAERS Safety Report 7404138-6 (Version None)
Quarter: 2011Q2

REPORT INFORMATION
  Report Type: 
  Country: None (occurrence: None)
  Receive Date: 20110408
  Receipt Date: 20110330
  Transmission Date: 20111010
  Serious: Yes (Death, Other)
  Sender: FDA-Public Use
  Company Number: JP-AMGEN-JPNCT2011003782

PATIENT
  Age: 59 Year
  Sex: Female
  Weight: 46 kg

DRUGS (20)
  1. FLUOROURACIL [Suspect]
     Indication: COLORECTAL CANCER
     Route: 041
     Dates: start: 20101001, end: 20101016
  2. KYTRIL [Concomitant]
     Dosage: UNK
     Route: 041
  3. DECADRON [Concomitant]
     Dosage: UNK
     Route: 042
  4. CALCIUM LEVOFOLINATE [Suspect]
     Indication: COLORECTAL CANCER
     Route: 041
     Dates: start: 20101001, end: 20101016
  5. TSUMURA DAIKENTYUTO [Concomitant]
     Indication: CONSTIPATION
     Dosage: UNK
     Route: 048
  6. METHYCOBAL [Concomitant]
     Indication: SCLERODERMA
     Dosage: UNK
     Route: 048
  7. LANSOPRAZOLE [Concomitant]
     Dosage: UNK
     Route: 048
  8. TSUMURA DAIKENTYUTO [Concomitant]
     Route: 048
  9. OXYCONTIN [Concomitant]
     Dosage: UNK
     Route: 048
  10. IRINOTECAN HCL [Suspect]
     Indication: COLORECTAL CANCER
     Route: 041
     Dates: start: 20101001, end: 20101016
  11. LOCOID CREAM [Concomitant]
     Dosage: UNK
     Route: 062
  12. MINOMYCIN [Concomitant]
     Dosage: UNK
     Route: 048
  13. LASIX [Concomitant]
     Dosage: UNK
     Route: 048
  14. ALDACTONE [Concomitant]
     Dosage: UNK
     Route: 048
  15. PREDNISOLONE [Concomitant]
     Dosage: UNK
     Route: 048
  16. PANITUMUMAB [Suspect]
     Indication: COLORECTAL CANCER
     Dosage: 6 MG/KG, Q2WK
     Route: 041
     Dates: start: 20101001, end: 20101016
  17. SINSERON [Concomitant]
     Dosage: UNK
     Route: 048
  18. HIRUDOID LOTION [Concomitant]
     Dosage: UNK
     Route: 062
  19. LORFENAMIN [Concomitant]
     Dosage: UNK
     Route: 048
  20. JUVELA N [Concomitant]
     Indication: SCLERODERMA
     Dosage: UNK
     Route: 048

REACTIONS (5)
  - FEBRILE NEUTROPENIA [None]
  - NAUSEA [None]
  - HOT FLUSH [None]
  - COLORECTAL CANCER [None]
  - STOMATITIS [None]
